FAERS Safety Report 6220515-3 (Version None)
Quarter: 2009Q2

REPORT INFORMATION
  Report Type: 
  Country: None (occurrence: None)
  Receive Date: 20090610
  Receipt Date: 20090529
  Transmission Date: 20091009
  Serious: Yes (Other)
  Sender: FDA-Public Use
  Company Number: FR-AMGEN-US330878

PATIENT
  Sex: Male
  Weight: 98 kg

DRUGS (2)
  1. ENBREL [Suspect]
     Indication: PSORIASIS
     Route: 058
     Dates: start: 20061201, end: 20090101
  2. ENBREL [Suspect]
     Route: 058
     Dates: start: 20090101

REACTIONS (1)
  - VIRAL PERICARDITIS [None]
